FAERS Safety Report 5597590-2 (Version None)
Quarter: 2008Q1

REPORT INFORMATION
  Report Type: 
  Country: None (occurrence: None)
  Receive Date: 20080121
  Receipt Date: 20080109
  Transmission Date: 20080703
  Serious: Yes (Hospitalization)
  Sender: FDA-Public Use
  Company Number: B0502462A

PATIENT
  Age: 76 Year
  Sex: Male

DRUGS (6)
  1. ALKERAN [Suspect]
     Route: 048
     Dates: start: 20070901
  2. THALIDOMIDE [Suspect]
     Dosage: 100MG PER DAY
     Route: 048
     Dates: start: 20070917
  3. CHRONOADALATE [Suspect]
     Indication: DRUG USE FOR UNKNOWN INDICATION
     Dosage: 1UNIT PER DAY
     Route: 048
  4. ALDACTAZIDE [Suspect]
     Indication: DRUG USE FOR UNKNOWN INDICATION
     Dosage: .5UNIT PER DAY
     Route: 048
  5. ZOLTUM [Suspect]
     Indication: DRUG USE FOR UNKNOWN INDICATION
     Dosage: 1UNIT PER DAY
     Route: 048
  6. PREDNISONE [Suspect]
     Route: 048
     Dates: start: 20070901

REACTIONS (3)
  - PSORIASIS [None]
  - RASH MACULO-PAPULAR [None]
  - TREMOR [None]
